FAERS Safety Report 8488792-6 (Version None)
Quarter: 2012Q3

REPORT INFORMATION
  Report Type: 
  Country: None (occurrence: None)
  Receive Date: 20120705
  Receipt Date: 20120619
  Transmission Date: 20120928
  Serious: Yes (Death)
  Sender: FDA-Public Use
  Company Number: AT-CELGENEUS-009-50794-12062748

PATIENT
  Age: 61 Year

DRUGS (2)
  1. IMATINIB MESYLATE [Concomitant]
     Dosage: 400 MILLIGRAM
     Route: 065
  2. VIDAZA [Suspect]
     Route: 065
     Dates: start: 20090701

REACTIONS (2)
  - CHRONIC MYELOID LEUKAEMIA TRANSFORMATION [None]
  - ACUTE LEUKAEMIA [None]
